FAERS Safety Report 21881228 (Version 2)
Quarter: 2023Q1

REPORT INFORMATION
  Report Type: Spontaneous
  Country: US (occurrence: None)
  Receive Date: 20230118
  Receipt Date: 20230203
  Transmission Date: 20230418
  Serious: No
  Sender: FDA-Public Use
  Company Number: 2022A413783

PATIENT

DRUGS (1)
  1. TEZSPIRE [Suspect]
     Active Substance: TEZEPELUMAB-EKKO
     Indication: Asthma
     Route: 058

REACTIONS (5)
  - Decreased appetite [Unknown]
  - Panic attack [Unknown]
  - Weight decreased [Unknown]
  - Nightmare [Unknown]
  - Night sweats [Unknown]
